APPROVED DRUG PRODUCT: TOBRAMYCIN
Active Ingredient: TOBRAMYCIN
Strength: 0.3%
Dosage Form/Route: SOLUTION/DROPS;OPHTHALMIC
Application: A212628 | Product #001 | TE Code: AT
Applicant: GLAND PHARMA LTD
Approved: Mar 9, 2021 | RLD: No | RS: No | Type: RX